FAERS Safety Report 4966908-3 (Version None)
Quarter: 2006Q2

REPORT INFORMATION
  Report Type: 
  Country: None (occurrence: None)
  Receive Date: 20060407
  Receipt Date: 20051104
  Transmission Date: 20061013
  Serious: Yes (Hospitalization, Disabling, Other)
  Sender: FDA-Public Use
  Company Number: US-MERCK-0511USA00785

PATIENT
  Sex: Male
  Weight: 98 kg

DRUGS (10)
  1. VIOXX [Suspect]
     Indication: ARTHRITIS
     Route: 048
     Dates: start: 20020401, end: 20040304
  2. ADVAIR DISKUS 100/50 [Concomitant]
     Route: 065
  3. LIPITOR [Concomitant]
     Route: 065
  4. TYLENOL W/ CODEINE [Concomitant]
     Route: 065
  5. IBUPROFEN [Concomitant]
     Route: 065
  6. KEFLEX [Concomitant]
     Route: 065
  7. PREDNISONE [Concomitant]
     Route: 065
  8. AUGMENTIN '125' [Concomitant]
     Route: 065
  9. PHENERGAN EXPECTORANT W/ CODEINE [Concomitant]
     Route: 065
  10. PLAVIX [Concomitant]
     Route: 065

REACTIONS (6)
  - ADVERSE EVENT [None]
  - CEREBROVASCULAR ACCIDENT [None]
  - DEPRESSION [None]
  - GENERALISED ANXIETY DISORDER [None]
  - NODULE ON EXTREMITY [None]
  - VASCULAR OCCLUSION [None]
